FAERS Safety Report 6043735-X (Version None)
Quarter: 2009Q1

REPORT INFORMATION
  Report Type: 
  Country: None (occurrence: None)
  Receive Date: 20090120
  Receipt Date: 20090113
  Transmission Date: 20090719
  Serious: Yes (Death)
  Sender: FDA-Public Use
  Company Number: US-BRISTOL-MYERS SQUIBB COMPANY-14469902

PATIENT
  Age: 64 Year
  Sex: Female

DRUGS (3)
  1. TRAZODONE HCL [Suspect]
  2. PROPOXYPHENE HYDROCHLORIDE [Suspect]
  3. BENZODIAZEPINE [Suspect]

REACTIONS (1)
  - COMPLETED SUICIDE [None]
